FAERS Safety Report 12080504 (Version 1)
Quarter: 2016Q1

REPORT INFORMATION
  Report Type: Spontaneous
  Country: US (occurrence: None)
  Receive Date: 20160212
  Receipt Date: 20160212
  Transmission Date: 20160526
  Serious: Yes (Other)
  Sender: FDA-Public Use
  Company Number: None

PATIENT
  Age: 64 Year
  Sex: Male
  Weight: 74.84 kg

DRUGS (5)
  1. ZINC PICOLINATE [Concomitant]
     Active Substance: ZINC PICOLINATE
  2. DOXYCYCLINE HYCLATE. [Suspect]
     Active Substance: DOXYCYCLINE HYCLATE
     Indication: ACNE
     Route: 048
     Dates: start: 20150113, end: 20160204
  3. ZYRTEC [Concomitant]
     Active Substance: CETIRIZINE HYDROCHLORIDE
  4. ACETAMINOPHEN. [Concomitant]
     Active Substance: ACETAMINOPHEN
  5. VITAMIN D3 [Concomitant]
     Active Substance: CHOLECALCIFEROL

REACTIONS (7)
  - Pruritus [None]
  - Rash [None]
  - Erythema [None]
  - Dry skin [None]
  - Periorbital oedema [None]
  - Swelling face [None]
  - Swelling [None]

NARRATIVE: CASE EVENT DATE: 20160211
